FAERS Safety Report 5627864-8 (Version None)
Quarter: 2008Q1

REPORT INFORMATION
  Report Type: 
  Country: None (occurrence: None)
  Receive Date: 20080215
  Receipt Date: 20080206
  Transmission Date: 20080703
  Serious: Yes (Death, Congenital Anomaly, Other)
  Sender: FDA-Public Use
  Company Number: IE-WYE-G01020508

PATIENT

DRUGS (2)
  1. EFFEXOR XR [Suspect]
     Dosage: 225 MG EVERY
     Route: 064
  2. FLUOXETINE HCL [Suspect]
     Dosage: UNKNOWN
     Route: 064

REACTIONS (3)
  - DRUG EXPOSURE DURING PREGNANCY [None]
  - DYSMORPHISM [None]
  - STILLBIRTH [None]
